FAERS Safety Report 24066734 (Version 1)
Quarter: 2024Q3

REPORT INFORMATION
  Report Type: Report from Study
  Country: US (occurrence: US)
  Receive Date: 20240709
  Receipt Date: 20240709
  Transmission Date: 20241017
  Serious: Yes (Hospitalization)
  Sender: BAUSCH AND LOMB
  Company Number: US-BAUSCH-BL-2023-007753

PATIENT
  Age: 25 Year
  Sex: Female
  Weight: 66.3 kg

DRUGS (30)
  1. XIFAXAN [Suspect]
     Active Substance: RIFAXIMIN
     Indication: Hepatic encephalopathy
     Dosage: TAKE 1 TAB BY MOUTH IN THE MORNING AND 1 TAB IN THE EVENING
     Route: 048
  2. DELTASONE [Suspect]
     Active Substance: PREDNISONE
     Indication: Systemic lupus erythematosus
     Dosage: TAKE 1 TABLET IN THE MORNING
     Route: 048
  3. DELTASONE [Suspect]
     Active Substance: PREDNISONE
     Dosage: TAKE 2.5 MG TOTAL) BY MOUTH (ONE) TIME EACH DAY
     Route: 048
  4. CHRONULAC [Suspect]
     Active Substance: LACTULOSE
     Indication: Product used for unknown indication
     Dosage: 10GM/15 ML TAKE 30 ML (20 G) BY MOUTH 3 (THREE) TIMES A DAY.
     Route: 048
  5. PRED FORTE [Suspect]
     Active Substance: PREDNISOLONE ACETATE
     Indication: Systemic lupus erythematosus
     Route: 047
  6. BENLYSTA [Concomitant]
     Active Substance: BELIMUMAB
     Indication: Product used for unknown indication
     Dosage: INFUSE INTO VENOUS CATHETER EVERY 30 (THIRTY) DAYS.
     Route: 042
  7. CAPZASIN HP ARTHRITIS PAIN RELIEF [Concomitant]
     Active Substance: CAPSAICIN
     Indication: Product used for unknown indication
     Dosage: APPLY 1 APPLICATION TOPICAL IN MORNING AND 1 APPLICATION BEFORE BEDTIME.
     Route: 061
  8. NEXIUM [Concomitant]
     Active Substance: ESOMEPRAZOLE MAGNESIUM
     Indication: Product used for unknown indication
     Dosage: NEXIUM (ESOMEPRAZOLE) TAKE 1 CAPSULE (40 MG) BY MOUTH 1 (ONE) TIME EACH DAY.
     Route: 048
  9. ATARAX [Concomitant]
     Active Substance: HYDROXYZINE HYDROCHLORIDE
     Indication: Product used for unknown indication
     Route: 048
  10. BIOTENE DRY MOUTH [SODIUM FLUOROPHOSPHATE] [Concomitant]
     Indication: Product used for unknown indication
     Dosage: SPRAY 1 SPRAY MOUTH/ 4 TIMES DAILY AS NEEDED FOR DRY MOUTH
     Route: 048
  11. MYCOSTATIN [Concomitant]
     Active Substance: NYSTATIN
     Indication: Product used for unknown indication
     Dosage: 100000 UNITS/ML TAKE 5 ML (500000 UNITS) MOUTH 4 TIMES A DAY.
     Route: 048
  12. SEMAGLUTIDE [Concomitant]
     Active Substance: SEMAGLUTIDE
     Indication: Product used for unknown indication
     Dosage: SOLUTION PEN-INJECTOR  1 MG/DOSE, 4 MG/3ML INJECT 1 MG UNDER THE SKIN 1 (ONE) TIME PER WEEK
     Route: 058
  13. ACTIGALL [Concomitant]
     Active Substance: URSODIOL
     Indication: Product used for unknown indication
     Dosage: TAKE 2 CAPSULES (600 MG) BY MOUTH IN THE MORNING AND 2 CAPSULES (600 MG) BEFORE BEDTIME.
     Route: 048
  14. DEPO-PROVERA [Concomitant]
     Active Substance: MEDROXYPROGESTERONE ACETATE
     Indication: Product used for unknown indication
     Dosage: INJECT 1 ML INTO THE MUSCLE OF THE SHOULDER, THIGH. OR BUTTOCKS EVERY 3 (THREE) MONTHS
     Route: 030
  15. PATADAY [Concomitant]
     Active Substance: OLOPATADINE HYDROCHLORIDE
     Indication: Product used for unknown indication
     Dosage: INSTILL 1 DROP INTO 5 ML  BOTH EYES ONCE DAILY
     Route: 047
  16. PHENERGAN [Concomitant]
     Active Substance: PROMETHAZINE HYDROCHLORIDE
     Indication: Nausea
     Dosage: 6.25 MG/5 ML SYRUP, TAKE 10 ML (12.5 MG) 300 ML BY MOUTH EVERY 8 (EIGHT) HOURS
     Route: 048
  17. PHENERGAN [Concomitant]
     Active Substance: PROMETHAZINE HYDROCHLORIDE
     Indication: Vomiting
  18. CERAMIDE [Concomitant]
     Indication: Dry skin
     Route: 061
  19. ZYRTEC [Concomitant]
     Active Substance: CETIRIZINE HYDROCHLORIDE
     Indication: Product used for unknown indication
     Route: 048
  20. NEXIUM [Concomitant]
     Active Substance: ESOMEPRAZOLE MAGNESIUM
     Indication: Product used for unknown indication
     Route: 048
  21. FLONASE [Concomitant]
     Active Substance: FLUTICASONE PROPIONATE
     Indication: Rhinitis
     Dosage: ADMINISTER ONE SPRAY EACH NOSTRIL ONE TIME EACH DAY AFTER US E CLEAN AND REPLACE CAP
     Route: 045
  22. FLONASE [Concomitant]
     Active Substance: FLUTICASONE PROPIONATE
     Indication: Hypersensitivity
  23. ATARAX [Concomitant]
     Active Substance: HYDROXYZINE HYDROCHLORIDE
     Indication: Anxiety
     Route: 048
  24. CHRONULAC [Concomitant]
     Active Substance: LACTULOSE
     Indication: Product used for unknown indication
     Dosage: MORNING 15 ML AND 15 ML BEFORE BEDTIME
     Route: 048
  25. SINGULAIR [Concomitant]
     Active Substance: MONTELUKAST SODIUM
     Indication: Product used for unknown indication
     Route: 048
  26. CELLCEPT [Concomitant]
     Active Substance: MYCOPHENOLATE MOFETIL
     Indication: Product used for unknown indication
     Dosage: TAKE 2.5 ML THREE TIMES A DAY
     Route: 048
  27. RITUXAN [Concomitant]
     Active Substance: RITUXIMAB
     Indication: Product used for unknown indication
     Route: 065
  28. OZEMPIC [Concomitant]
     Active Substance: SEMAGLUTIDE
     Indication: Product used for unknown indication
     Route: 058
  29. ACTIGALL [Concomitant]
     Active Substance: URSODIOL
     Indication: Product used for unknown indication
     Dosage: TAKE 2 CAPSULE IN MORNING AND 2 CAPSULE IN BETIMES
     Route: 048
  30. BENLYSTA [Concomitant]
     Active Substance: BELIMUMAB
     Indication: Product used for unknown indication
     Dosage: IV
     Route: 065

REACTIONS (5)
  - Brain fog [Not Recovered/Not Resolved]
  - Weight increased [Unknown]
  - Memory impairment [Unknown]
  - Dyschezia [Unknown]
  - Insurance issue [Unknown]
